FAERS Safety Report 5412547-X (Version None)
Quarter: 2007Q3

REPORT INFORMATION
  Report Type: 
  Country: None (occurrence: None)
  Receive Date: 20070813
  Receipt Date: 20070803
  Transmission Date: 20080115
  Serious: Yes (Other)
  Sender: FDA-Public Use
  Company Number: B0482867A

PATIENT
  Age: 65 Year
  Sex: Male

DRUGS (1)
  1. AVODART [Suspect]
     Indication: DRUG USE FOR UNKNOWN INDICATION
     Dosage: .5MG PER DAY
     Route: 048
     Dates: start: 20070101

REACTIONS (5)
  - CHEST PAIN [None]
  - DIZZINESS [None]
  - DYSPNOEA [None]
  - PULSE ABNORMAL [None]
  - VENTRICULAR EXTRASYSTOLES [None]
